FAERS Safety Report 11943258 (Version 1)
Quarter: 2016Q1

REPORT INFORMATION
  Report Type: Spontaneous
  Country: US (occurrence: US)
  Receive Date: 20160125
  Receipt Date: 20160125
  Transmission Date: 20160526
  Serious: Yes (Life-Threatening, Hospitalization)
  Sender: FDA-Public Use
  Company Number: US-UNITED THERAPEUTICS-UNT-2015-013075

PATIENT
  Sex: Female

DRUGS (2)
  1. REMODULIN [Suspect]
     Active Substance: TREPROSTINIL
     Indication: PULMONARY ARTERIAL HYPERTENSION
     Dosage: 0.01250 ?G/KG/MIN, Q72H
     Route: 058
     Dates: start: 201509
  2. REMODULIN [Suspect]
     Active Substance: TREPROSTINIL
     Dosage: 0.0125 ?G/KG, CONTINUING
     Route: 058

REACTIONS (4)
  - Pulmonary hypertension [Unknown]
  - Device issue [Unknown]
  - Drug dose omission [Unknown]
  - Oedema peripheral [Unknown]

NARRATIVE: CASE EVENT DATE: 20151015
